FAERS Safety Report 20439832 (Version 1)
Quarter: 2022Q1

REPORT INFORMATION
  Report Type: Spontaneous
  Country: BE (occurrence: BE)
  Receive Date: 20220207
  Receipt Date: 20220207
  Transmission Date: 20220423
  Serious: Yes (Other)
  Sender: FDA-Public Use
  Company Number: BE-GLAXOSMITHKLINE-BE2022GSK020793

PATIENT
  Age: 41 Year
  Sex: Female

DRUGS (15)
  1. ACYCLOVIR [Suspect]
     Active Substance: ACYCLOVIR
     Indication: Oral herpes
     Dosage: 800 MG 5 TIMES A DAY
  2. ACYCLOVIR [Suspect]
     Active Substance: ACYCLOVIR
     Indication: Antiviral prophylaxis
     Dosage: 400 MG, BID
  3. ACYCLOVIR [Suspect]
     Active Substance: ACYCLOVIR
     Indication: Ophthalmic herpes zoster
     Dosage: 400 MG, 5 TIMES A DAY
  4. ACYCLOVIR [Suspect]
     Active Substance: ACYCLOVIR
     Indication: Cytomegalovirus infection reactivation
  5. ACYCLOVIR [Suspect]
     Active Substance: ACYCLOVIR
     Indication: Hepatobiliary disorder prophylaxis
  6. BRIVUDINE [Suspect]
     Active Substance: BRIVUDINE
     Indication: Ophthalmic herpes zoster
     Dosage: 10 TIMES A DAY
     Route: 061
  7. BRIVUDINE [Suspect]
     Active Substance: BRIVUDINE
     Dosage: 5 TIMES A DAY
     Route: 061
  8. BRIVUDINE [Suspect]
     Active Substance: BRIVUDINE
     Dosage: 8 TIMES A DAY
     Route: 061
  9. VALGANCICLOVIR [Suspect]
     Active Substance: VALGANCICLOVIR
     Indication: Oral herpes
     Dosage: UNK
  10. VALGANCICLOVIR [Suspect]
     Active Substance: VALGANCICLOVIR
     Indication: Ophthalmic herpes zoster
  11. VALGANCICLOVIR [Suspect]
     Active Substance: VALGANCICLOVIR
     Indication: Cytomegalovirus infection reactivation
  12. VALGANCICLOVIR [Suspect]
     Active Substance: VALGANCICLOVIR
     Indication: Antiviral prophylaxis
  13. METHYLPREDNISOLONE [Concomitant]
     Active Substance: METHYLPREDNISOLONE
     Indication: Herpes ophthalmic
     Dosage: 72 MG
     Route: 048
  14. METHYLPREDNISOLONE [Concomitant]
     Active Substance: METHYLPREDNISOLONE
     Dosage: 4 MG, 1D
  15. RUXOLITINIB [Concomitant]
     Active Substance: RUXOLITINIB
     Indication: Herpes ophthalmic
     Dosage: 10 MG

REACTIONS (5)
  - Drug resistance [Unknown]
  - Pathogen resistance [Unknown]
  - Viral mutation identified [Unknown]
  - Ulcer [Unknown]
  - Drug ineffective [Unknown]
